FAERS Safety Report 24290537 (Version 1)
Quarter: 2024Q3

REPORT INFORMATION
  Report Type: Spontaneous
  Country: ES (occurrence: ES)
  Receive Date: 20240906
  Receipt Date: 20240906
  Transmission Date: 20241017
  Serious: Yes (Death, Hospitalization, Other)
  Sender: RANBAXY
  Company Number: ES-SUN PHARMACEUTICAL INDUSTRIES LTD-2024R1-466242

PATIENT
  Age: 65 Year
  Sex: Male

DRUGS (2)
  1. PACLITAXEL [Suspect]
     Active Substance: PACLITAXEL
     Indication: Chemotherapy
     Route: 065
  2. CARBOPLATIN [Suspect]
     Active Substance: CARBOPLATIN
     Indication: Chemotherapy
     Route: 065

REACTIONS (6)
  - Condition aggravated [Fatal]
  - Chronic kidney disease [Unknown]
  - Neutropenia [Unknown]
  - Tumour lysis syndrome [Unknown]
  - Anuria [Unknown]
  - Depressed level of consciousness [Unknown]
